FAERS Safety Report 4656617-2 (Version None)
Quarter: 2005Q2

REPORT INFORMATION
  Report Type: 
  Country: None (occurrence: None)
  Receive Date: 20050509
  Receipt Date: 20050428
  Transmission Date: 20051028
  Serious: Yes (Other)
  Sender: FDA-Public Use
  Company Number: 2005UW06680

PATIENT
  Age: 51 Year
  Sex: Male
  Weight: 102.1 kg

DRUGS (9)
  1. SEROQUEL [Suspect]
     Route: 048
     Dates: start: 20030101
  2. SERZONE [Suspect]
     Route: 048
  3. RISPERDAL [Concomitant]
  4. LORTAB [Concomitant]
  5. XANAX [Concomitant]
  6. ZOCOR [Concomitant]
  7. NITROGLYCERIN [Concomitant]
  8. ANTI-INFLAMMATORY MEDICATION [Concomitant]
  9. OTHER MEDICATIONS [Concomitant]

REACTIONS (7)
  - DRUG DISPENSING ERROR [None]
  - DYSKINESIA [None]
  - RESTLESS LEGS SYNDROME [None]
  - THINKING ABNORMAL [None]
  - TONGUE DISORDER [None]
  - TREMOR [None]
  - WRONG DRUG ADMINISTERED [None]
